FAERS Safety Report 4608100-8 (Version None)
Quarter: 2005Q2

REPORT INFORMATION
  Report Type: 
  Country: None (occurrence: None)
  Receive Date: 20050303
  Receipt Date: 20041026
  Transmission Date: 20051028
  Serious: No
  Sender: FDA-Public Use
  Company Number: 209941

PATIENT
  Age: 49 Year
  Sex: Female

DRUGS (1)
  1. XOLAIR [Suspect]
     Indication: ASTHMA
     Dosage: 225 MG, Q2W, SUBCUTANEOUS
     Route: 058
     Dates: start: 20041005

REACTIONS (2)
  - DYSPNOEA [None]
  - SWELLING FACE [None]
